FAERS Safety Report 4484222-X (Version None)
Quarter: 2004Q4

REPORT INFORMATION
  Report Type: 
  Country: None (occurrence: None)
  Receive Date: 20041025
  Receipt Date: 20030416
  Transmission Date: 20050328
  Serious: Yes (Hospitalization, Disabling)
  Sender: FDA-Public Use
  Company Number: CA-GLAXOSMITHKLINE-A0405729A

PATIENT
  Age: 75 Year
  Sex: Male
  Weight: 81.6 kg

DRUGS (7)
  1. NAVELBINE [Suspect]
     Indication: NON-SMALL CELL LUNG CANCER
     Dosage: 30MGM2 CYCLIC
     Route: 042
     Dates: start: 20021008, end: 20021008
  2. NITRO PATCH [Concomitant]
     Dates: start: 20020925
  3. ZOCOR [Concomitant]
     Dates: start: 20020925
  4. TENORMIN [Concomitant]
     Dates: start: 20020925
  5. PRINIVIL [Concomitant]
     Dates: start: 20020925
  6. HYDROCHLOROTHIAZIDE [Concomitant]
     Dates: start: 20020925, end: 20021017
  7. NOVASEN [Concomitant]
     Dates: start: 20020925, end: 20021017

REACTIONS (4)
  - ASTHENIA [None]
  - CEREBRAL INFARCTION [None]
  - CONFUSIONAL STATE [None]
  - PERFORMANCE STATUS DECREASED [None]
